FAERS Safety Report 6837021-5 (Version None)
Quarter: 2010Q3

REPORT INFORMATION
  Report Type: 
  Country: None (occurrence: None)
  Receive Date: 20100713
  Receipt Date: 20070501
  Transmission Date: 20110219
  Serious: No
  Sender: FDA-Public Use
  Company Number: US-PFIZER INC-2007036355

PATIENT
  Sex: Female
  Weight: 70.5 kg

DRUGS (7)
  1. CHANTIX [Suspect]
     Indication: SMOKING CESSATION THERAPY
     Dates: start: 20070101
  2. COREG [Concomitant]
     Indication: HYPERTENSION
  3. FUROSEMIDE [Concomitant]
  4. FOSAMAX [Concomitant]
  5. ANASTROZOLE [Concomitant]
  6. ZYBAN [Concomitant]
     Indication: SMOKING CESSATION THERAPY
  7. NICOTINE [Concomitant]
     Indication: SMOKING CESSATION THERAPY

REACTIONS (1)
  - ABNORMAL DREAMS [None]
